FAERS Safety Report 6135549-7 (Version None)
Quarter: 2009Q1

REPORT INFORMATION
  Report Type: 
  Country: None (occurrence: None)
  Receive Date: 20090327
  Receipt Date: 20090324
  Transmission Date: 20090719
  Serious: Yes (Other)
  Sender: FDA-Public Use
  Company Number: D0060999A

PATIENT
  Sex: Female

DRUGS (1)
  1. MALARONE [Suspect]
     Indication: PROPHYLAXIS
     Route: 048

REACTIONS (5)
  - DIARRHOEA [None]
  - DISTURBANCE IN ATTENTION [None]
  - GAMMA-GLUTAMYLTRANSFERASE INCREASED [None]
  - PANCREATITIS [None]
  - VOMITING [None]
